FAERS Safety Report 5632535-8 (Version None)
Quarter: 2008Q1

REPORT INFORMATION
  Report Type: 
  Country: None (occurrence: None)
  Receive Date: 20080220
  Receipt Date: 20080211
  Transmission Date: 20080703
  Serious: Yes (Hospitalization)
  Sender: FDA-Public Use
  Company Number: DE-ABBOTT-08P-062-0433636-00

PATIENT
  Age: 51 Year
  Sex: Female

DRUGS (2)
  1. AVONEX [Suspect]
     Indication: MULTIPLE SCLEROSIS
     Dosage: N
     Route: 030
     Dates: start: 20030401, end: 20070801
  2. AVONEX [Suspect]
     Route: 030
     Dates: start: 20070801

REACTIONS (6)
  - GASTRIC ULCER HELICOBACTER [None]
  - HAEMORRHAGIC OVARIAN CYST [None]
  - INFLUENZA LIKE ILLNESS [None]
  - OVARIAN ADHESION [None]
  - UTERINE LEIOMYOMA [None]
  - UTERINE POLYP [None]
